FAERS Safety Report 5632729-1 (Version None)
Quarter: 2008Q1

REPORT INFORMATION
  Report Type: 
  Country: None (occurrence: None)
  Receive Date: 20080221
  Receipt Date: 20080212
  Transmission Date: 20080703
  Serious: Yes (Disabling)
  Sender: FDA-Public Use
  Company Number: FR-JNJFOC-20080106119

PATIENT
  Age: 51 Year
  Sex: Male

DRUGS (3)
  1. OFLOCET [Suspect]
     Indication: LOCALISED INFECTION
     Route: 048
  2. ZYVOX [Concomitant]
     Indication: INFECTION
     Route: 048
  3. VFEND [Concomitant]
     Indication: INFECTION
     Route: 048

REACTIONS (1)
  - MYOCLONUS [None]
